FAERS Safety Report 5787575-5 (Version None)
Quarter: 2008Q2

REPORT INFORMATION
  Report Type: 
  Country: None (occurrence: None)
  Receive Date: 20080625
  Receipt Date: 20080623
  Transmission Date: 20081010
  Serious: Yes (Hospitalization)
  Sender: FDA-Public Use
  Company Number: US-JNJFOC-20080601017

PATIENT
  Sex: Female
  Weight: 58.06 kg

DRUGS (7)
  1. FLEXERIL [Suspect]
     Indication: MUSCLE SPASMS
     Route: 048
  2. DURAGESIC-100 [Concomitant]
     Dosage: TWO 12.5 UG/HR PATCHES
     Route: 062
  3. DURAGESIC-100 [Concomitant]
     Indication: BACK PAIN
     Route: 062
  4. XANAX [Concomitant]
     Indication: SLEEP DISORDER
  5. XANAX [Concomitant]
     Indication: ANXIETY
     Dosage: .25 MG THREE TIMES/DAY AND .5 MG AT BEDTIME
  6. LOMOTIL [Concomitant]
     Indication: DIARRHOEA
     Route: 048
  7. LEVOTHYROXINE SODIUM [Concomitant]

REACTIONS (6)
  - BACK INJURY [None]
  - BLOOD CHOLESTEROL INCREASED [None]
  - DEPRESSION [None]
  - FALL [None]
  - HYPERTENSION [None]
  - INTENTIONAL DRUG MISUSE [None]
